FAERS Safety Report 4448038-2 (Version None)
Quarter: 2004Q3

REPORT INFORMATION
  Report Type: 
  Country: None (occurrence: None)
  Receive Date: 20040817
  Receipt Date: 20040224
  Transmission Date: 20050211
  Serious: Yes (Hospitalization)
  Sender: FDA-Public Use
  Company Number: MEDI-0001484

PATIENT
  Age: 7 Month
  Sex: Male
  Weight: 10.97 kg

DRUGS (7)
  1. SYNAGIS [Suspect]
     Indication: ANTIVIRAL PROPHYLAXIS
     Dosage: 1.6 M1, 1 IN 30 D, INTRAMUSCULAR
     Route: 030
     Dates: start: 20031030, end: 20040122
  2. ALBUTEROL [Concomitant]
  3. XOPENEX [Concomitant]
  4. PREDNISOL (PREDNISOLONE SODIUM PHOSPHATE) [Concomitant]
  5. ATROVENT [Concomitant]
  6. REGLAN [Concomitant]
  7. FERRIC CHLORIDE (FERRIC CHLORIDE) [Concomitant]

REACTIONS (1)
  - RESPIRATORY SYNCYTIAL VIRUS INFECTION [None]
